FAERS Safety Report 6246453-8 (Version None)
Quarter: 2009Q2

REPORT INFORMATION
  Report Type: 
  Country: None (occurrence: None)
  Receive Date: 20090626
  Receipt Date: 20090618
  Transmission Date: 20091009
  Serious: Yes (Other)
  Sender: FDA-Public Use
  Company Number: SI-ROCHE-639343

PATIENT
  Sex: Male

DRUGS (5)
  1. MIRCERA [Suspect]
     Route: 042
     Dates: start: 20071201
  2. MIRCERA [Suspect]
     Route: 042
  3. ENAP [Concomitant]
     Dosage: DOSE: 2 X2, 5MG.
  4. CORYOL [Concomitant]
     Dosage: DOSE: 2X3, 125MG.
  5. CALCIUM CARBONATE [Concomitant]
     Dosage: DOSE: 3X1.

REACTIONS (1)
  - GASTRIC CANCER [None]
